FAERS Safety Report 7264695-X (Version None)
Quarter: 2011Q1

REPORT INFORMATION
  Report Type: 
  Country: None (occurrence: None)
  Receive Date: 20110131
  Receipt Date: 20110130
  Transmission Date: 20110831
  Serious: No
  Sender: FDA-Public Use
  Company Number: US-PFIZER INC-2011021174

PATIENT
  Sex: Male
  Weight: 79 kg

DRUGS (1)
  1. CELEBREX [Suspect]
     Indication: MUSCULOSKELETAL DISCOMFORT
     Dosage: 200 MG, 2X/DAY
     Route: 048
     Dates: start: 20110128

REACTIONS (1)
  - DIARRHOEA [None]
